FAERS Safety Report 16956981 (Version 1)
Quarter: 2019Q4

REPORT INFORMATION
  Report Type: Other
  Country: US (occurrence: US)
  Receive Date: 20191024
  Receipt Date: 20191024
  Transmission Date: 20200122
  Serious: Yes (Hospitalization, Other)
  Sender: FDA-Public Use
  Company Number: US-GUARDIAN DRUG COMPANY-2076006

PATIENT
  Age: 37 Year
  Sex: Female

DRUGS (3)
  1. KETOROLAC TROMETHAMINE. [Concomitant]
     Active Substance: KETOROLAC TROMETHAMINE
     Route: 042
  2. CHILDRENS IBUPROFEN [Suspect]
     Active Substance: IBUPROFEN
     Indication: PELVIC CONGESTION
     Route: 065
  3. ACETAMINOPHEN. [Concomitant]
     Active Substance: ACETAMINOPHEN
     Route: 065

REACTIONS (6)
  - Condition aggravated [Recovering/Resolving]
  - Renal infarct [Unknown]
  - Abdominal pain upper [Recovering/Resolving]
  - Acute kidney injury [Recovering/Resolving]
  - Decreased appetite [Unknown]
  - Renal ischaemia [Recovering/Resolving]
